FAERS Safety Report 5620736-4 (Version None)
Quarter: 2008Q1

REPORT INFORMATION
  Report Type: 
  Country: None (occurrence: None)
  Receive Date: 20080208
  Receipt Date: 20080204
  Transmission Date: 20080703
  Serious: Yes (Death)
  Sender: FDA-Public Use
  Company Number: NO-PFIZER INC-2008011454

PATIENT
  Age: 79 Year
  Sex: Male

DRUGS (1)
  1. CABERGOLINE [Suspect]

REACTIONS (2)
  - AORTIC STENOSIS [None]
  - SUDDEN DEATH [None]
